FAERS Safety Report 5668423-0 (Version None)
Quarter: 2008Q1

REPORT INFORMATION
  Report Type: 
  Country: None (occurrence: None)
  Receive Date: 20080312
  Receipt Date: 20080304
  Transmission Date: 20080703
  Serious: Yes (Hospitalization)
  Sender: FDA-Public Use
  Company Number: 2008PL000020

PATIENT
  Age: 72 Year
  Sex: Male
  Weight: 35.3806 kg

DRUGS (6)
  1. ZYLOPRIM [Suspect]
     Indication: GOUT
     Dosage: 200 MG; BID; PO
     Route: 048
     Dates: start: 20070601, end: 20071209
  2. CETUXIMAB [Suspect]
     Indication: PANCREATIC CARCINOMA
     Dosage: 768 MG; X1 WK; IV;   480 MG; QWK; IV
     Route: 042
     Dates: start: 20071128, end: 20071128
  3. CETUXIMAB [Suspect]
     Indication: PANCREATIC CARCINOMA
     Dosage: 768 MG; X1 WK; IV;   480 MG; QWK; IV
     Route: 042
     Dates: start: 20071203, end: 20071203
  4. OXALIPLATIN [Suspect]
     Indication: PANCREATIC CARCINOMA
     Dosage: 100 MG/M2; Q2WK; IV
     Route: 042
     Dates: start: 20071128, end: 20071128
  5. GEMCITABINE [Suspect]
     Indication: PANCREATIC CARCINOMA
     Dosage: 1000 MG/M2; Q2WK; IV
     Route: 042
     Dates: start: 20071128, end: 20071128
  6. INDOCIN [Suspect]
     Indication: GOUT
     Dosage: 50 MG; BID; PO
     Route: 048
     Dates: start: 20071206, end: 20071207

REACTIONS (4)
  - DEHYDRATION [None]
  - GOUT [None]
  - LEUKOCYTOCLASTIC VASCULITIS [None]
  - SERUM SICKNESS [None]
